FAERS Safety Report 5924987-0 (Version None)
Quarter: 2008Q3

REPORT INFORMATION
  Report Type: 
  Country: None (occurrence: None)
  Receive Date: 20080909
  Receipt Date: 20080429
  Transmission Date: 20090109
  Serious: Yes (Other)
  Sender: FDA-Public Use
  Company Number: 163-20785-08040544

PATIENT
  Age: 68 Year
  Sex: Male

DRUGS (1)
  1. THALOMID [Suspect]
     Indication: MULTIPLE MYELOMA
     Dosage: 200 MG, 2 IN 1 D, ORAL
     Route: 048
     Dates: start: 20080131, end: 20080321

REACTIONS (5)
  - CONVULSION [None]
  - GASTROINTESTINAL DISORDER [None]
  - HEART RATE INCREASED [None]
  - STOMATITIS [None]
  - TREMOR [None]
